FAERS Safety Report 14838967 (Version 2)
Quarter: 2018Q2

REPORT INFORMATION
  Report Type: Spontaneous
  Country: CO (occurrence: CO)
  Receive Date: 20180502
  Receipt Date: 20180530
  Transmission Date: 20180711
  Serious: Yes (Other)
  Sender: FDA-Public Use
  Company Number: CO-PFIZER INC-2018176242

PATIENT
  Age: 12 Year
  Sex: Male

DRUGS (1)
  1. GENOTROPIN [Suspect]
     Active Substance: SOMATROPIN
     Indication: GROWTH RETARDATION
     Dosage: 1.6 IU, UNK
     Route: 058
     Dates: start: 20180424

REACTIONS (3)
  - Rash pruritic [Recovered/Resolved]
  - Rash pruritic [Recovering/Resolving]
  - Poisoning [Recovered/Resolved]

NARRATIVE: CASE EVENT DATE: 20180424
